FAERS Safety Report 22332632 (Version 2)
Quarter: 2023Q2

REPORT INFORMATION
  Report Type: Spontaneous
  Country: CN (occurrence: CN)
  Receive Date: 20230517
  Receipt Date: 20230525
  Transmission Date: 20230721
  Serious: Yes (Hospitalization)
  Sender: FDA-Public Use
  Company Number: CN-PFIZER INC-PV202300085953

PATIENT
  Age: 20 Year
  Sex: Female
  Weight: 49 kg

DRUGS (4)
  1. CYTARABINE [Suspect]
     Active Substance: CYTARABINE
     Indication: T-cell lymphoma
     Dosage: 4.5 G, 1X/DAY
     Route: 037
     Dates: start: 20230426, end: 20230426
  2. CYTARABINE [Suspect]
     Active Substance: CYTARABINE
     Dosage: 0.04 G, 1X/DAY
     Route: 037
     Dates: start: 20230427, end: 20230427
  3. METHOTREXATE [Concomitant]
     Active Substance: METHOTREXATE
     Indication: T-cell lymphoma
     Dosage: 1.5 G, 1X/DAY
     Route: 037
     Dates: start: 20230426, end: 20230426
  4. METHOTREXATE [Concomitant]
     Active Substance: METHOTREXATE
     Dosage: 0.012 G, 1X/DAY
     Route: 037
     Dates: start: 20230427, end: 20230427

REACTIONS (1)
  - Myelosuppression [Not Recovered/Not Resolved]

NARRATIVE: CASE EVENT DATE: 20230504
